FAERS Safety Report 5664956-1 (Version None)
Quarter: 2008Q1

REPORT INFORMATION
  Report Type: 
  Country: None (occurrence: None)
  Receive Date: 20080314
  Receipt Date: 20080303
  Transmission Date: 20080703
  Serious: Yes (Life-Threatening, Other)
  Sender: FDA-Public Use
  Company Number: GB-PFIZER INC-2008013050

PATIENT
  Sex: Male

DRUGS (6)
  1. CHAMPIX [Suspect]
     Indication: SMOKING CESSATION THERAPY
     Route: 048
     Dates: start: 20080110, end: 20080213
  2. ALL OTHER THERAPEUTIC PRODUCTS [Interacting]
  3. PHENELZINE [Concomitant]
     Route: 048
  4. OLANZAPINE [Concomitant]
     Route: 048
  5. ZOPICLONE [Concomitant]
     Route: 048
  6. VALPROATE SODIUM [Concomitant]
     Route: 048

REACTIONS (10)
  - AFFECTIVE DISORDER [None]
  - ALCOHOL USE [None]
  - APATHY [None]
  - DEPRESSION [None]
  - DRUG INTERACTION [None]
  - INSOMNIA [None]
  - IRRITABILITY [None]
  - POST-TRAUMATIC STRESS DISORDER [None]
  - SMOKER [None]
  - SUICIDAL IDEATION [None]
